FAERS Safety Report 7589260-6 (Version None)
Quarter: 2011Q3

REPORT INFORMATION
  Report Type: 
  Country: None (occurrence: None)
  Receive Date: 20110705
  Receipt Date: 20110628
  Transmission Date: 20111222
  Serious: No
  Sender: FDA-Public Use
  Company Number: US-JNJFOC-20110509149

PATIENT
  Sex: Female

DRUGS (6)
  1. DESYREL (TRAZADONE HCL) [Concomitant]
     Indication: SLEEP DISORDER
     Route: 065
  2. INVEGA SUSTENNA [Suspect]
     Route: 030
  3. DEPAKOTE [Concomitant]
     Indication: DRUG THERAPY
     Route: 065
  4. COGENTIN [Concomitant]
     Indication: EXTRAPYRAMIDAL DISORDER
     Route: 065
  5. INVEGA SUSTENNA [Suspect]
     Indication: SCHIZOPHRENIA
     Route: 030
  6. INVEGA [Suspect]
     Indication: PRODUCT USED FOR UNKNOWN INDICATION
     Route: 048

REACTIONS (3)
  - AMENORRHOEA [None]
  - HYPERPROLACTINAEMIA [None]
  - PRODUCT QUALITY ISSUE [None]
